FAERS Safety Report 18169916 (Version 4)
Quarter: 2020Q4

REPORT INFORMATION
  Report Type: Spontaneous
  Country: JP (occurrence: JP)
  Receive Date: 20200819
  Receipt Date: 20201217
  Transmission Date: 20210113
  Serious: Yes (Hospitalization, Other)
  Sender: FDA-Public Use
  Company Number: JP-SHIRE-JP202026620

PATIENT
  Age: 33 Year
  Sex: Male
  Weight: 90 kg

DRUGS (4)
  1. BIO-THREE [Concomitant]
     Active Substance: HERBALS
     Dosage: 3 UNK,THREE(CLOSTRIDIUM BUTYRICUM COMBINED DRUG), 3 DF, 1 DF/8 HOURS
     Route: 048
     Dates: start: 20171025
  2. BIO-THREE [Concomitant]
     Active Substance: HERBALS
     Indication: DIARRHOEA
     Dosage: 3 DOSAGE FORM, 3X/DAY:TID
     Route: 048
     Dates: start: 201710
  3. LIALDA [Suspect]
     Active Substance: MESALAMINE
     Indication: COLITIS ULCERATIVE
     Dosage: 4800 MILLIGRAM, 1X/DAY:QD
     Route: 048
     Dates: start: 20171025, end: 20171116
  4. SODIUM FERRIC CITRATE [Concomitant]
     Active Substance: FERRIC SODIUM CITRATE
     Indication: IRON DEFICIENCY ANAEMIA
     Dosage: 200 MILLIGRAM
     Route: 048
     Dates: start: 20171028

REACTIONS (5)
  - Upper respiratory tract inflammation [Recovered/Resolved]
  - C-reactive protein increased [Recovered/Resolved]
  - Drug intolerance [Recovering/Resolving]
  - Stomatitis [Recovered/Resolved]
  - Arthralgia [Recovered/Resolved]

NARRATIVE: CASE EVENT DATE: 20171108
